FAERS Safety Report 11839076 (Version 1)
Quarter: 2015Q4

REPORT INFORMATION
  Report Type: Spontaneous
  Country: US (occurrence: US)
  Receive Date: 20151216
  Receipt Date: 20151216
  Transmission Date: 20160305
  Serious: Yes (Disabling, Other)
  Sender: FDA-Public Use
  Company Number: US-ZYDUS-009709

PATIENT
  Age: 46 Year
  Sex: Male

DRUGS (3)
  1. LEVOFLOXACIN. [Suspect]
     Active Substance: LEVOFLOXACIN
     Indication: EPIDIDYMITIS
     Dosage: 750 MG/DAY
     Route: 065
  2. LANSOPRAZOLE. [Concomitant]
     Active Substance: LANSOPRAZOLE
     Indication: PRODUCT USED FOR UNKNOWN INDICATION
  3. CETIRIZINE [Concomitant]
     Active Substance: CETIRIZINE HYDROCHLORIDE
     Indication: PRODUCT USED FOR UNKNOWN INDICATION

REACTIONS (17)
  - Visual impairment [Unknown]
  - Muscle atrophy [Unknown]
  - Nervous system disorder [Unknown]
  - Tendon disorder [Unknown]
  - Fibromyalgia [Unknown]
  - Gastrointestinal motility disorder [Unknown]
  - Polyneuropathy [Unknown]
  - Muscular weakness [Unknown]
  - Autonomic neuropathy [Unknown]
  - Tachycardia [Unknown]
  - Myalgia [Unknown]
  - Depression [Unknown]
  - Anxiety [Unknown]
  - Fatigue [Unknown]
  - Bradycardia [Unknown]
  - Neuropathy peripheral [Unknown]
  - Gastrointestinal disorder [Unknown]
